FAERS Safety Report 23475279 (Version 1)
Quarter: 2024Q1

REPORT INFORMATION
  Report Type: Spontaneous
  Country: AU (occurrence: AU)
  Receive Date: 20240204
  Receipt Date: 20240204
  Transmission Date: 20240410
  Serious: No
  Sender: FDA-Public Use
  Company Number: AU-EXELIXIS-CABO-22059076

PATIENT
  Sex: Male

DRUGS (1)
  1. CABOMETYX [Suspect]
     Active Substance: CABOZANTINIB S-MALATE
     Indication: Bone sarcoma
     Dosage: 60 MG, QD
     Route: 048

REACTIONS (2)
  - Liver function test abnormal [Recovering/Resolving]
  - Off label use [Unknown]
